FAERS Safety Report 13684557 (Version 1)
Quarter: 2017Q2

REPORT INFORMATION
  Report Type: Spontaneous
  Country: US (occurrence: US)
  Receive Date: 20170623
  Receipt Date: 20170623
  Transmission Date: 20170830
  Serious: No
  Sender: FDA-Public Use
  Company Number: US-ASTELLAS-2016US031086

PATIENT
  Sex: Female

DRUGS (3)
  1. VESICARE [Suspect]
     Active Substance: SOLIFENACIN SUCCINATE
     Dosage: 5 MG (TAKES HALF THE PILL DAILY), ONCE DAILY
     Route: 048
     Dates: start: 201608
  2. VESICARE [Suspect]
     Active Substance: SOLIFENACIN SUCCINATE
     Indication: PRODUCT USED FOR UNKNOWN INDICATION
     Route: 048
     Dates: start: 2013, end: 2015
  3. VESICARE [Suspect]
     Active Substance: SOLIFENACIN SUCCINATE
     Dosage: UNK, EVERY OTHER NIGHT
     Route: 065

REACTIONS (5)
  - Inappropriate schedule of drug administration [Unknown]
  - Dry mouth [Unknown]
  - Dry eye [Unknown]
  - Wrong technique in product usage process [Unknown]
  - Intentional underdose [Unknown]

NARRATIVE: CASE EVENT DATE: 2013
